FAERS Safety Report 12397368 (Version 1)
Quarter: 2016Q2

REPORT INFORMATION
  Report Type: Spontaneous
  Country: US (occurrence: None)
  Receive Date: 20160523
  Receipt Date: 20160523
  Transmission Date: 20160815
  Serious: No
  Sender: FDA-Public Use
  Company Number: None

PATIENT
  Age: 68 Year
  Sex: Female
  Weight: 51.71 kg

DRUGS (1)
  1. PENNSAID [Suspect]
     Active Substance: DICLOFENAC SODIUM
     Indication: OSTEOARTHRITIS
     Dosage: APPLIED TO A SURFACE, USUALLY THE SKIN
     Dates: start: 20160502, end: 20160503

REACTIONS (3)
  - Reaction to drug excipients [None]
  - Stomatitis [None]
  - Dysgeusia [None]

NARRATIVE: CASE EVENT DATE: 20160502
